FAERS Safety Report 10589143 (Version 2)
Quarter: 2015Q3

REPORT INFORMATION
  Report Type: Spontaneous
  Country: US (occurrence: US)
  Receive Date: 20141118
  Receipt Date: 20150818
  Transmission Date: 20151125
  Serious: No
  Sender: FDA-Public Use
  Company Number: US-GILEAD-2014-0122914

PATIENT
  Age: 73 Year
  Sex: Female

DRUGS (16)
  1. MAGNESIUM [Concomitant]
     Active Substance: MAGNESIUM
  2. MULTI VITAMIN [Concomitant]
     Active Substance: VITAMINS
  3. POTASSIUM [Concomitant]
     Active Substance: POTASSIUM
  4. LYRICA [Concomitant]
     Active Substance: PREGABALIN
  5. QUININE [Concomitant]
     Active Substance: QUININE
  6. GABAPENTIN. [Concomitant]
     Active Substance: GABAPENTIN
  7. ALBUTEROL                          /00139501/ [Concomitant]
     Active Substance: ALBUTEROL
  8. OMEGA-3 FATTY ACIDS [Concomitant]
     Active Substance: OMEGA-3 FATTY ACIDS
  9. HYDROCODONE [Concomitant]
     Active Substance: HYDROCODONE
  10. LETAIRIS [Suspect]
     Active Substance: AMBRISENTAN
     Indication: PULMONARY HYPERTENSION
     Dosage: 5 MG, QD
     Route: 065
     Dates: start: 20140917
  11. FUROSEMIDE. [Concomitant]
     Active Substance: FUROSEMIDE
  12. LYSINE [Concomitant]
     Active Substance: LYSINE
  13. UBIQUINOL [Concomitant]
  14. WARFARIN [Concomitant]
     Active Substance: WARFARIN
  15. FLONASE                            /00908302/ [Concomitant]
     Active Substance: MOMETASONE FUROATE
  16. SILDENAFIL. [Concomitant]
     Active Substance: SILDENAFIL

REACTIONS (5)
  - Depression [Unknown]
  - Infection [Unknown]
  - Sinusitis [Unknown]
  - Hangnail [Unknown]
  - Drug dose omission [Unknown]

NARRATIVE: CASE EVENT DATE: 201401
